FAERS Safety Report 7631895-6 (Version None)
Quarter: 2011Q3

REPORT INFORMATION
  Report Type: 
  Country: None (occurrence: None)
  Receive Date: 20110725
  Receipt Date: 20110505
  Transmission Date: 20111222
  Serious: Yes (Other)
  Sender: FDA-Public Use
  Company Number: US-BRISTOL-MYERS SQUIBB COMPANY-15721483

PATIENT
  Age: 59 Year
  Sex: Female

DRUGS (7)
  1. JANTOVEN [Suspect]
     Indication: PULMONARY EMBOLISM
  2. LORTAB [Concomitant]
     Dosage: 1 DF= 10 UNITS NOS
  3. COUMADIN [Suspect]
     Indication: PULMONARY EMBOLISM
     Dosage: 7.5 MG FOR 4 DAYS AND 10 MG FOR 1 DAY EACH WEEK,7.5 MG FOR 3 DAYS AND 10 MG FOR 1 DAY EACH WEEK
  4. PANTOPRAZOLE [Concomitant]
  5. VALIUM [Concomitant]
  6. DOXAZOSIN MESYLATE [Concomitant]
  7. LIPITOR [Concomitant]

REACTIONS (2)
  - INTERNATIONAL NORMALISED RATIO DECREASED [None]
  - BLISTER [None]
